FAERS Safety Report 7754462-2 (Version None)
Quarter: 2011Q3

REPORT INFORMATION
  Report Type: 
  Country: None (occurrence: None)
  Receive Date: 20110915
  Receipt Date: 20110912
  Transmission Date: 20111222
  Serious: Yes (Death)
  Sender: FDA-Public Use
  Company Number: US-GILEAD-2011-0043450

PATIENT
  Sex: Female

DRUGS (2)
  1. TYVASO [Concomitant]
  2. LETAIRIS [Suspect]
     Indication: PULMONARY HYPERTENSION
     Route: 048
     Dates: start: 20110708, end: 20110808

REACTIONS (1)
  - CARDIOVASCULAR DISORDER [None]
